FAERS Safety Report 14663853 (Version 2)
Quarter: 2019Q1

REPORT INFORMATION
  Report Type: Spontaneous
  Country: US (occurrence: US)
  Receive Date: 20180321
  Receipt Date: 20190208
  Transmission Date: 20190417
  Serious: Yes (Death, Other)
  Sender: FDA-Public Use
  Company Number: US-WEST-WARD PHARMACEUTICALS CORP.-US-H14001-18-01290

PATIENT
  Age: 55 Year
  Sex: Male

DRUGS (7)
  1. ARGATROBAN. [Concomitant]
     Active Substance: ARGATROBAN
     Indication: THROMBOSIS PROPHYLAXIS
     Dosage: 0.5 MCG/KG/MIN
     Route: 042
  2. ARGATROBAN. [Concomitant]
     Active Substance: ARGATROBAN
     Dosage: 0.375 MCG/KGMIN
     Route: 042
  3. HEPARIN [Suspect]
     Active Substance: HEPARIN SODIUM
     Indication: THROMBOSIS PROPHYLAXIS
     Route: 065
  4. ARGATROBAN. [Concomitant]
     Active Substance: ARGATROBAN
     Dosage: 17.30 ML/H
     Route: 065
  5. HEPARIN [Suspect]
     Active Substance: HEPARIN SODIUM
     Route: 042
  6. ARGATROBAN. [Concomitant]
     Active Substance: ARGATROBAN
     Dosage: 8.9 ML/H
     Route: 065
  7. ARGATROBAN. [Concomitant]
     Active Substance: ARGATROBAN
     Dosage: 25 MG/25 ML
     Route: 065

REACTIONS (3)
  - Heparin-induced thrombocytopenia [Unknown]
  - Cardiac arrest [Fatal]
  - Deep vein thrombosis [Unknown]
